FAERS Safety Report 6727166-2 (Version None)
Quarter: 2010Q2

REPORT INFORMATION
  Report Type: 
  Country: None (occurrence: None)
  Receive Date: 20100517
  Receipt Date: 20100510
  Transmission Date: 20101027
  Serious: Yes (Death, Other)
  Sender: FDA-Public Use
  Company Number: DE-CELGENEUS-062-21880-10042350

PATIENT
  Age: 65 Year
  Sex: Female
  Weight: 45 kg

DRUGS (55)
  1. REVLIMID [Suspect]
     Indication: MYELOMA RECURRENCE
     Route: 048
     Dates: start: 20100408, end: 20100420
  2. DEXAMETHASONE [Suspect]
     Indication: MYELOMA RECURRENCE
     Route: 048
     Dates: start: 20100408, end: 20100417
  3. CYCLOPHOSPHAMIDE [Suspect]
     Indication: MYELOMA RECURRENCE
     Route: 048
     Dates: start: 20100408, end: 20100418
  4. TAVANIC [Concomitant]
     Indication: INFECTION PROPHYLAXIS
     Route: 065
     Dates: start: 20100422, end: 20100504
  5. KONAKION [Concomitant]
     Indication: VITAMIN K DEFICIENCY
     Route: 065
     Dates: start: 20100429, end: 20100429
  6. KONAKION [Concomitant]
     Route: 065
     Dates: start: 20100501, end: 20100505
  7. PANTOZOL [Concomitant]
     Route: 065
     Dates: start: 20090101, end: 20100506
  8. LYRICA [Concomitant]
     Route: 065
     Dates: start: 20090101, end: 20100410
  9. LYRICA [Concomitant]
     Route: 065
     Dates: start: 20100411, end: 20100506
  10. AMITRIPTYLINE HCL [Concomitant]
     Indication: DEPRESSION
     Route: 065
     Dates: start: 20091016, end: 20100428
  11. AMITRIPTYLINE HCL [Concomitant]
     Indication: PAIN
     Route: 065
     Dates: start: 20100429, end: 20100430
  12. AMITRIPTYLINE HCL [Concomitant]
     Route: 065
     Dates: start: 20100501, end: 20100506
  13. COTRIM [Concomitant]
     Indication: INFECTION PROPHYLAXIS
     Route: 065
     Dates: start: 20090101, end: 20100505
  14. ACYCLOVIR SODIUM [Concomitant]
     Indication: HERPES ZOSTER
     Route: 065
     Dates: start: 20091016, end: 20100506
  15. LEVOTHYROXINE SODIUM [Concomitant]
     Route: 065
     Dates: start: 20100301, end: 20100406
  16. TARGIN [Concomitant]
     Indication: PAIN
     Route: 065
     Dates: start: 20090101, end: 20100412
  17. TARGIN [Concomitant]
     Route: 065
     Dates: start: 20100418
  18. DIPYRONE TAB [Concomitant]
     Indication: PAIN
     Route: 065
     Dates: start: 20100330, end: 20100406
  19. LEVOTHYROXINE SODIUM [Concomitant]
     Indication: HYPOTHYROIDISM
     Route: 065
     Dates: start: 20100407, end: 20100407
  20. LEVOTHYROXINE SODIUM [Concomitant]
     Route: 065
     Dates: start: 20100408, end: 20100408
  21. LEVOTHYROXINE SODIUM [Concomitant]
     Route: 065
     Dates: start: 20100409, end: 20100506
  22. FENTANYL [Concomitant]
     Indication: PAIN
     Route: 062
     Dates: start: 20100407, end: 20100408
  23. FENTANYL [Concomitant]
     Route: 062
     Dates: start: 20100409, end: 20100416
  24. LAXOBERAL [Concomitant]
     Indication: CONSTIPATION
     Route: 065
     Dates: start: 20100413, end: 20100413
  25. LAXOBERAL [Concomitant]
     Route: 065
     Dates: start: 20100415, end: 20100415
  26. METOCLOPRAMIDE [Concomitant]
     Indication: NAUSEA
     Route: 065
     Dates: start: 20100411, end: 20100411
  27. FLUTICASONE W/SALMETEROL [Concomitant]
     Route: 065
     Dates: start: 20100411, end: 20100411
  28. FLUTICASONE W/SALMETEROL [Concomitant]
     Route: 065
     Dates: start: 20100417, end: 20100420
  29. IBUPROFENE [Concomitant]
     Indication: PAIN
     Route: 065
     Dates: start: 20100411, end: 20100411
  30. IBUPROFENE [Concomitant]
     Route: 065
     Dates: start: 20100412, end: 20100414
  31. LASIX [Concomitant]
     Indication: PAIN
     Route: 065
     Dates: start: 20100414, end: 20100416
  32. LASIX [Concomitant]
     Route: 065
     Dates: start: 20100416, end: 20100416
  33. LASIX [Concomitant]
     Route: 065
     Dates: start: 20100416, end: 20100420
  34. LASIX [Concomitant]
     Route: 065
     Dates: start: 20100503, end: 20100503
  35. DIPIDOLOR [Concomitant]
     Indication: PAIN
     Route: 065
     Dates: start: 20100410, end: 20100410
  36. MORPHINE [Concomitant]
     Indication: PAIN
     Route: 065
     Dates: start: 20100416, end: 20100507
  37. MORPHINE [Concomitant]
     Route: 065
     Dates: start: 20100507, end: 20100510
  38. PERFALGAN [Concomitant]
     Indication: PAIN
     Route: 065
     Dates: start: 20100418, end: 20100418
  39. PERFALGAN [Concomitant]
  40. KALIUM BRAUSE [Concomitant]
     Route: 065
     Dates: start: 20100419, end: 20100419
  41. DECORTIN H [Concomitant]
     Route: 065
     Dates: start: 20100416, end: 20100416
  42. DECORTIN H [Concomitant]
     Route: 065
     Dates: start: 20100420, end: 20100420
  43. DECORTIN H [Concomitant]
     Route: 065
     Dates: start: 20100422, end: 20100423
  44. FAKTU SALBE [Concomitant]
     Route: 062
     Dates: start: 20100416, end: 20100416
  45. FAKTU SALBE [Concomitant]
     Route: 062
     Dates: start: 20100417, end: 20100419
  46. VIANI DISC [Concomitant]
     Route: 065
     Dates: start: 20100411, end: 20100411
  47. VIANI DISC [Concomitant]
     Route: 065
     Dates: start: 20100417, end: 20100420
  48. VIANI DISC [Concomitant]
     Route: 065
     Dates: start: 20100422, end: 20100501
  49. AREDIA [Concomitant]
     Indication: MULTIPLE MYELOMA
     Route: 065
     Dates: start: 20090101, end: 20100430
  50. COMFEEL [Concomitant]
     Route: 065
     Dates: start: 20100416, end: 20100426
  51. MIRFULAN [Concomitant]
     Route: 065
     Dates: start: 20100414, end: 20100416
  52. RED BLOOD CELLS [Concomitant]
     Indication: DRUG USE FOR UNKNOWN INDICATION
     Route: 065
     Dates: start: 20100407, end: 20100407
  53. RED BLOOD CELLS [Concomitant]
     Route: 065
     Dates: start: 20100413, end: 20100413
  54. RED BLOOD CELLS [Concomitant]
     Route: 065
     Dates: start: 20100421, end: 20100421
  55. RED BLOOD CELLS [Concomitant]
     Route: 065
     Dates: start: 20100428, end: 20100428

REACTIONS (2)
  - RESPIRATORY FAILURE [None]
  - THROMBOCYTOPENIA [None]
